FAERS Safety Report 9803875 (Version 1)
Quarter: 2014Q1

REPORT INFORMATION
  Report Type: Spontaneous
  Country: CA (occurrence: CA)
  Receive Date: 20140108
  Receipt Date: 20140108
  Transmission Date: 20141002
  Serious: Yes (Other)
  Sender: FDA-Public Use
  Company Number: CA-SA-2013SA136600

PATIENT
  Sex: Female

DRUGS (15)
  1. DOCETAXEL [Suspect]
     Indication: PRODUCT USED FOR UNKNOWN INDICATION
     Route: 065
  2. HERCEPTIN [Suspect]
     Indication: PRODUCT USED FOR UNKNOWN INDICATION
     Route: 065
  3. PERJETA [Suspect]
     Indication: BREAST CANCER METASTATIC
     Route: 065
     Dates: start: 20130821
  4. PANTOLOC [Concomitant]
     Indication: GASTROOESOPHAGEAL REFLUX DISEASE
     Dosage: ACID REFLEX
     Dates: start: 2013
  5. ZESTORETIC [Concomitant]
     Dosage: 20 YEARS AGO
  6. DECADRON [Concomitant]
     Dates: start: 201309
  7. CRESTOR [Concomitant]
     Dosage: SINCE 10 YEARS AGO
  8. PAXIL [Concomitant]
     Dates: start: 2009
  9. VITAMIN D [Concomitant]
     Dates: start: 201309
  10. CALCIUM [Concomitant]
     Dates: start: 201309
  11. VITAMIN B [Concomitant]
     Dosage: SINCE 10 YEARS AGO
  12. VITAMIN C [Concomitant]
     Dosage: SINCE 20 YEARS AGO
  13. CLONAZEPAM [Concomitant]
     Dates: start: 2009
  14. MULTIVITAMIN AND MINERAL SUPPLEMENT [Concomitant]
     Indication: MACULAR DEGENERATION
  15. OTHER CHEMOTHERAPEUTICS [Concomitant]
     Dates: start: 200901, end: 200905

REACTIONS (9)
  - Femur fracture [Unknown]
  - Kidney infection [Unknown]
  - Upper limb fracture [Unknown]
  - Paraesthesia [Unknown]
  - Bowel movement irregularity [Unknown]
  - Diarrhoea [Unknown]
  - Constipation [Unknown]
  - Red blood cell count decreased [Unknown]
  - Haemorrhoidal haemorrhage [Unknown]
